FAERS Safety Report 13080777 (Version 1)
Quarter: 2017Q1

REPORT INFORMATION
  Report Type: Spontaneous
  Country: FR (occurrence: FR)
  Receive Date: 20170103
  Receipt Date: 20170103
  Transmission Date: 20170428
  Serious: Yes (Life-Threatening, Hospitalization)
  Sender: FDA-Public Use
  Company Number: FR-PFIZER INC-2016593094

PATIENT
  Age: 61 Year
  Sex: Male

DRUGS (7)
  1. ZEVALIN [Suspect]
     Active Substance: IBRITUMOMAB TIUXETAN
     Indication: MANTLE CELL LYMPHOMA
     Dosage: 807 MBQ, CYCLIC
     Route: 042
     Dates: start: 20161116, end: 20161116
  2. CARBOPLATINE HOSPIRA [Suspect]
     Active Substance: CARBOPLATIN
     Indication: MANTLE CELL LYMPHOMA
     Dosage: 814 MG, DAILY, CYCLIC
     Route: 042
     Dates: start: 20160715, end: 20161017
  3. MABTHERA [Suspect]
     Active Substance: RITUXIMAB
     Dosage: 690 (UNIT UNSPECIFIED), DAILY, CYCLIC
     Dates: start: 20160715, end: 20161017
  4. DEXAMETHASONE MERCK /00016005/ [Suspect]
     Active Substance: DEXAMETHASONE ACETATE
     Indication: MANTLE CELL LYMPHOMA
     Dosage: 40 MG, DAILY, CYCLIC
     Route: 042
     Dates: start: 20160715, end: 20161017
  5. MABTHERA [Suspect]
     Active Substance: RITUXIMAB
     Indication: MANTLE CELL LYMPHOMA
     Dosage: 455 (UNIT UNSPECIFIED), DAILY, CYCLIC
     Route: 042
     Dates: start: 20161109, end: 20161116
  6. CYTARABINE EBEWE [Suspect]
     Active Substance: CYTARABINE
     Indication: MANTLE CELL LYMPHOMA
     Dosage: 3680 MG, 2X/DAY, CYCLIC
     Route: 042
     Dates: start: 20160715, end: 201608
  7. CYTARABINE KABI [Suspect]
     Active Substance: CYTARABINE
     Indication: MANTLE CELL LYMPHOMA
     Dosage: UNK
     Dates: start: 201609, end: 20161017

REACTIONS (1)
  - Thrombotic microangiopathy [Unknown]

NARRATIVE: CASE EVENT DATE: 20161123
